FAERS Safety Report 25914389 (Version 2)
Quarter: 2025Q4

REPORT INFORMATION
  Report Type: Spontaneous
  Country: US (occurrence: US)
  Receive Date: 20251013
  Receipt Date: 20251028
  Transmission Date: 20260118
  Serious: No
  Sender: PFIZER
  Company Number: US-PFIZER INC-202500199580

PATIENT
  Age: 68 Year
  Sex: Female

DRUGS (1)
  1. LITFULO [Suspect]
     Active Substance: RITLECITINIB TOSYLATE
     Indication: Alopecia areata
     Dosage: 50 MG, 1X/DAY
     Route: 048
     Dates: start: 20250715

REACTIONS (1)
  - Drug ineffective [Unknown]
